FAERS Safety Report 17434930 (Version 1)
Quarter: 2020Q1

REPORT INFORMATION
  Report Type: Spontaneous
  Country: DK (occurrence: DK)
  Receive Date: 20200219
  Receipt Date: 20200219
  Transmission Date: 20200409
  Serious: Yes (Other)
  Sender: FDA-Public Use
  Company Number: NVSC2020DK039540

PATIENT
  Age: 67 Year
  Sex: Female

DRUGS (3)
  1. ZOLEDRONIC ACID [Suspect]
     Active Substance: ZOLEDRONIC ACID
     Indication: BONE DISORDER
     Dosage: 1 DF, Q4W, (STYRKE: 4 MG/5ML)
     Route: 042
     Dates: start: 201805, end: 201906
  2. IBANDRONAT STADA [Concomitant]
     Indication: BONE DISORDER
     Dosage: 50 MG, QD, (STYRKE: 50 MG)
     Route: 048
     Dates: start: 20180328, end: 20190312
  3. PROLIA [Concomitant]
     Active Substance: DENOSUMAB
     Indication: OSTEOPOROSIS
     Dosage: UNK, (STYRKE: 60 MG/ML. DOSIS: UKENDT)
     Route: 065
     Dates: start: 20131126, end: 20191011

REACTIONS (1)
  - Osteonecrosis of jaw [Recovering/Resolving]

NARRATIVE: CASE EVENT DATE: 201907
